FAERS Safety Report 8578600-7 (Version None)
Quarter: 2012Q3

REPORT INFORMATION
  Report Type: 
  Country: None (occurrence: None)
  Receive Date: 20120808
  Receipt Date: 20120802
  Transmission Date: 20120928
  Serious: Yes (Hospitalization)
  Sender: FDA-Public Use
  Company Number: FR-SANOFI-AVENTIS-2012SA055239

PATIENT
  Age: 82 Year
  Sex: Male

DRUGS (12)
  1. ASPIRIN [Concomitant]
     Route: 065
  2. OXAZEPAM [Concomitant]
     Route: 065
  3. FUROSEMIDE [Suspect]
     Route: 048
     Dates: start: 20110101, end: 20120609
  4. POLYETHYLENE GLYCOL [Concomitant]
     Route: 065
  5. RAMIPRIL [Concomitant]
     Route: 065
  6. LANTUS [Concomitant]
     Route: 065
  7. DIGOXIN [Concomitant]
     Route: 065
  8. AVODART [Suspect]
     Indication: PROSTATIC ADENOMA
     Route: 048
     Dates: end: 20120609
  9. MOLSIDOMINE [Concomitant]
     Route: 065
  10. ZOPICLONE [Concomitant]
     Route: 065
  11. ALFUZOSIN HYDROCHLORIDE [Suspect]
     Route: 048
     Dates: end: 20120609
  12. SINGULAIR [Concomitant]
     Route: 065

REACTIONS (2)
  - FALL [None]
  - ORTHOSTATIC HYPOTENSION [None]
